FAERS Safety Report 16175933 (Version 1)
Quarter: 2019Q2

REPORT INFORMATION
  Report Type: Spontaneous
  Country: IT (occurrence: IT)
  Receive Date: 20190409
  Receipt Date: 20190409
  Transmission Date: 20190711
  Serious: Yes (Life-Threatening, Congenital Anomaly)
  Sender: FDA-Public Use
  Company Number: IT-TEVA-2019-IT-1034462

PATIENT
  Age: 71 Year
  Sex: Female
  Weight: 70 kg

DRUGS (2)
  1. METFORMIN [Suspect]
     Active Substance: METFORMIN HYDROCHLORIDE
     Indication: DIABETES MELLITUS
     Dosage: 1 DOSAGE FORMS DAILY;
     Route: 065
     Dates: start: 20190307, end: 20190311
  2. IOMERON [Suspect]
     Active Substance: IOMEPROL
     Indication: INVESTIGATION
     Dates: start: 20190311, end: 20190311

REACTIONS (1)
  - Mitochondrial enzyme deficiency [Recovered/Resolved with Sequelae]

NARRATIVE: CASE EVENT DATE: 20190311
